FAERS Safety Report 18181788 (Version 1)
Quarter: 2020Q3

REPORT INFORMATION
  Report Type: Spontaneous
  Country: FR (occurrence: FR)
  Receive Date: 20200821
  Receipt Date: 20200821
  Transmission Date: 20201103
  Serious: Yes (Life-Threatening)
  Sender: FDA-Public Use
  Company Number: NVSC2020FR230770

PATIENT
  Age: 96 Year
  Sex: Female
  Weight: 54 kg

DRUGS (12)
  1. ALPRAZOLAM. [Concomitant]
     Active Substance: ALPRAZOLAM
     Indication: PRODUCT USED FOR UNKNOWN INDICATION
     Dosage: 0.25 MG, QD
     Route: 065
  2. TEGRETOL [Suspect]
     Active Substance: CARBAMAZEPINE
     Dosage: 2 DF, ONCE/SINGLE (TOTAL)
     Route: 048
     Dates: start: 20200710, end: 20200710
  3. KEPPRA [Suspect]
     Active Substance: LEVETIRACETAM
     Indication: WRONG PATIENT RECEIVED PRODUCT
     Dosage: 2 DF, ONCE/SINGLE (TOTAL)
     Route: 048
     Dates: start: 20200710, end: 20200710
  4. AMLODIPINE [Concomitant]
     Active Substance: AMLODIPINE BESYLATE
     Indication: PRODUCT USED FOR UNKNOWN INDICATION
     Dosage: 5 MG, QD
     Route: 065
  5. TRIATEC [Concomitant]
     Indication: PRODUCT USED FOR UNKNOWN INDICATION
     Dosage: 10 MG, QD
     Route: 065
  6. KEPPRA [Suspect]
     Active Substance: LEVETIRACETAM
     Dosage: 2 DF, ONCE/SINGLE (TOTAL)
     Route: 048
     Dates: start: 20200710, end: 20200710
  7. PREVISCAN [Concomitant]
     Indication: PRODUCT USED FOR UNKNOWN INDICATION
     Dosage: UNK (SELON L^INR)
     Route: 065
  8. PROPRANOLOL [Suspect]
     Active Substance: PROPRANOLOL HYDROCHLORIDE
     Indication: WRONG PATIENT RECEIVED PRODUCT
     Dosage: 40 MG, ONCE/SINGLE (TOTAL)
     Route: 048
     Dates: start: 20200710, end: 20200710
  9. SOTALOL. [Concomitant]
     Active Substance: SOTALOL
     Indication: PRODUCT USED FOR UNKNOWN INDICATION
     Dosage: 80 MG, QD
     Route: 065
  10. ATORVASTATINE [Concomitant]
     Active Substance: ATORVASTATIN
     Indication: PRODUCT USED FOR UNKNOWN INDICATION
     Dosage: 20 MG, QD
     Route: 065
  11. TEGRETOL [Suspect]
     Active Substance: CARBAMAZEPINE
     Indication: WRONG PATIENT RECEIVED PRODUCT
     Dosage: 2 DF, ONCE/SINGLE (TOTAL)
     Route: 048
     Dates: start: 20200710, end: 20200710
  12. TANAKAN [Suspect]
     Active Substance: GINKGO
     Indication: WRONG PATIENT RECEIVED PRODUCT
     Dosage: 1 OT, ONCE/SINGLE (TOTAL)
     Route: 048
     Dates: start: 20200710, end: 20200710

REACTIONS (2)
  - Acute pulmonary oedema [Recovering/Resolving]
  - Wrong patient received product [Recovered/Resolved]

NARRATIVE: CASE EVENT DATE: 20200711
